FAERS Safety Report 21572092 (Version 1)
Quarter: 2022Q4

REPORT INFORMATION
  Report Type: Spontaneous
  Country: US (occurrence: US)
  Receive Date: 20221109
  Receipt Date: 20221109
  Transmission Date: 20230112
  Serious: Yes (Other)
  Sender: FDA-Public Use
  Company Number: US-ELI_LILLY_AND_COMPANY-US202211000290

PATIENT
  Age: 53 Year
  Sex: Female

DRUGS (14)
  1. INSULIN LISPRO [Suspect]
     Active Substance: INSULIN LISPRO
     Indication: Diabetes mellitus
     Dosage: UNK UNK, UNKNOWN
     Route: 065
  2. INSULIN LISPRO [Suspect]
     Active Substance: INSULIN LISPRO
     Indication: Diabetes mellitus
     Dosage: UNK UNK, UNKNOWN
     Route: 065
  3. INSULIN LISPRO [Suspect]
     Active Substance: INSULIN LISPRO
     Dosage: UNK UNK, UNKNOWN
     Route: 065
  4. INSULIN LISPRO [Suspect]
     Active Substance: INSULIN LISPRO
     Dosage: UNK UNK, UNKNOWN
     Route: 065
  5. INSULIN LISPRO [Suspect]
     Active Substance: INSULIN LISPRO
     Dosage: UNK UNK, UNKNOWN
     Route: 065
  6. INSULIN LISPRO [Suspect]
     Active Substance: INSULIN LISPRO
     Dosage: UNK UNK, UNKNOWN
     Route: 065
  7. INSULIN LISPRO [Suspect]
     Active Substance: INSULIN LISPRO
     Dosage: UNK UNK, UNKNOWN
     Route: 065
  8. BASAGLAR [Suspect]
     Active Substance: INSULIN GLARGINE
     Indication: Diabetes mellitus
     Dosage: 60 U, DAILY
     Route: 065
  9. BASAGLAR [Suspect]
     Active Substance: INSULIN GLARGINE
     Indication: Diabetes mellitus
     Dosage: 60 U, DAILY
     Route: 065
  10. BASAGLAR [Suspect]
     Active Substance: INSULIN GLARGINE
     Dosage: 60 U, DAILY
     Route: 065
  11. BASAGLAR [Suspect]
     Active Substance: INSULIN GLARGINE
     Dosage: 60 U, DAILY
     Route: 065
  12. BASAGLAR [Suspect]
     Active Substance: INSULIN GLARGINE
     Dosage: 60 U, DAILY
     Route: 065
  13. BASAGLAR [Suspect]
     Active Substance: INSULIN GLARGINE
     Dosage: 60 U, DAILY
     Route: 065
  14. BASAGLAR [Suspect]
     Active Substance: INSULIN GLARGINE
     Dosage: 60 U, DAILY
     Route: 065

REACTIONS (1)
  - Cerebrovascular accident [Unknown]

NARRATIVE: CASE EVENT DATE: 20221021
